FAERS Safety Report 17211506 (Version 1)
Quarter: 2019Q4

REPORT INFORMATION
  Report Type: Other
  Country: IT (occurrence: IT)
  Receive Date: 20191229
  Receipt Date: 20191229
  Transmission Date: 20200122
  Serious: Yes (Other)
  Sender: FDA-Public Use
  Company Number: IT-DENTSPLY-2019SCDP000699

PATIENT
  Age: 76 Year
  Sex: Female

DRUGS (4)
  1. PETHIDINE HYDROCHLORIDE [Suspect]
     Active Substance: MEPERIDINE HYDROCHLORIDE
     Indication: ANAESTHESIA
     Dosage: 1 DOSAGE FORM, TOTAL
  2. LIDOCAINE HYDROCHLORIDE AND EPINEPHRINE BITARTRATE [Suspect]
     Active Substance: EPINEPHRINE BITARTRATE\LIDOCAINE HYDROCHLORIDE
     Indication: LOCAL ANAESTHESIA
     Dosage: UNK
  3. IPNOVEL [MIDAZOLAM] [Suspect]
     Active Substance: MIDAZOLAM HYDROCHLORIDE
     Indication: SEDATION
     Dosage: 1 DOSAGE FORM, TOTAL
  4. VALIUM NOVUM [Suspect]
     Active Substance: DIAZEPAM
     Indication: SEDATION
     Dosage: 1 DOSAGE FORM, TOTAL

REACTIONS (1)
  - Asthenia [None]
